FAERS Safety Report 6370063-5 (Version None)
Quarter: 2009Q3

REPORT INFORMATION
  Report Type: 
  Country: None (occurrence: None)
  Receive Date: 20090923
  Receipt Date: 20070310
  Transmission Date: 20100115
  Serious: Yes (Other)
  Sender: FDA-Public Use
  Company Number: US-ASTRAZENECA-2006UW21306

PATIENT
  Age: 36 Year
  Sex: Female
  Weight: 104.3 kg

DRUGS (51)
  1. SEROQUEL [Suspect]
     Indication: DEPRESSION
     Dosage: 25-200 MG
     Route: 048
     Dates: start: 20040929
  2. SEROQUEL [Suspect]
     Indication: ANXIETY
     Dosage: 25-200 MG
     Route: 048
     Dates: start: 20040929
  3. SEROQUEL [Suspect]
     Indication: INSOMNIA
     Dosage: 25-200 MG
     Route: 048
     Dates: start: 20040929
  4. SEROQUEL [Suspect]
     Route: 048
     Dates: start: 20041201, end: 20061101
  5. SEROQUEL [Suspect]
     Route: 048
     Dates: start: 20041201, end: 20061101
  6. SEROQUEL [Suspect]
     Route: 048
     Dates: start: 20041201, end: 20061101
  7. LORTAB [Concomitant]
     Indication: PAIN
     Dosage: 1-2 MG
     Route: 048
  8. PEPCID [Concomitant]
  9. PHENERGAN [Concomitant]
     Dosage: 12.5-25 MG
     Route: 051
  10. PHENERGAN [Concomitant]
     Route: 048
  11. NOVOLIN R [Concomitant]
     Dosage: 0.01 ML-0.04 ML, TWICE A DAY
     Route: 058
  12. PROZAC [Concomitant]
     Route: 048
  13. PROZAC [Concomitant]
  14. KLONOPIN [Concomitant]
     Indication: ANXIETY
     Dosage: 1-2 MG, TWICE A DAY
     Route: 048
  15. ANCEF [Concomitant]
  16. HUMULIN R [Concomitant]
     Dosage: 1-8 UNIT
     Route: 058
  17. LEVAQUIN [Concomitant]
  18. LEVAQUIN [Concomitant]
     Dosage: 500 MG/ML, ONCE A DAY
     Route: 051
  19. DOXYCYCLINE HYCLATE [Concomitant]
     Route: 048
  20. MORPHINE [Concomitant]
     Route: 051
  21. VISTARIL [Concomitant]
  22. TYLENOL (CAPLET) [Concomitant]
     Dosage: 650 MG EVERY 4-6 HOURS
     Route: 048
  23. DARVOCET-N 100 [Concomitant]
  24. GLUCAGON [Concomitant]
     Dosage: 1 MG AS REQUORED
     Route: 030
  25. MOTRIN [Concomitant]
     Dosage: 800 MG, THRICE A DAY WITH MEALS
     Route: 048
  26. FLAGYL [Concomitant]
  27. ATIVAN [Concomitant]
     Route: 051
  28. ZOFRAN [Concomitant]
     Route: 051
  29. VYTORIN [Concomitant]
     Dosage: 10/40 DAILY
     Route: 048
  30. AMITRIPTYLINE [Concomitant]
  31. DIFLUCAN [Concomitant]
     Dosage: 100-200 MG
     Route: 048
  32. ZYRTEC-D 12 HOUR [Concomitant]
     Dosage: 5-120 MG
  33. AMBIEN [Concomitant]
  34. MEPROZINE [Concomitant]
     Dosage: 25-50 MG
  35. CEPHALEXIN [Concomitant]
  36. PALGIC-D [Concomitant]
     Dosage: 8-80 MG
  37. PAXIL [Concomitant]
     Dosage: 10-20 MG
     Route: 048
  38. CYCLOBENZAPRINE [Concomitant]
  39. ALBUTEROL [Concomitant]
  40. BISACODYL [Concomitant]
  41. EFFEXOR XR [Concomitant]
     Indication: DEPRESSION
     Route: 048
  42. REGLAN [Concomitant]
     Dosage: 10 MG/2ML, EVERY 6 HOURS
     Route: 051
  43. SOMA [Concomitant]
     Indication: HYPOTONIA
     Route: 048
  44. RESTORIL [Concomitant]
  45. ROCEPHIN [Concomitant]
     Route: 051
  46. PROTONIX [Concomitant]
  47. DEMEROL [Concomitant]
     Route: 051
  48. VIBRAMYCIN [Concomitant]
     Route: 048
  49. NEXIUM [Concomitant]
     Route: 051
  50. ZITHROMAX [Concomitant]
  51. TRAZODONE HYDROCHLORIDE [Concomitant]

REACTIONS (2)
  - DIABETES MELLITUS [None]
  - GASTROENTERITIS [None]
